FAERS Safety Report 7996348-4 (Version None)
Quarter: 2011Q4

REPORT INFORMATION
  Report Type: 
  Country: None (occurrence: None)
  Receive Date: 20111220
  Receipt Date: 20111215
  Transmission Date: 20120403
  Serious: Yes (Hospitalization)
  Sender: FDA-Public Use
  Company Number: FR-ROCHE-796161

PATIENT
  Sex: Male

DRUGS (4)
  1. DEXAMETHASONE [Concomitant]
  2. MABTHERA [Suspect]
     Indication: NON-HODGKIN'S LYMPHOMA
     Dosage: ROUTE, DOSE AND FREQUENCY WAS NOT REPORTED.
     Route: 065
  3. CYTARABINE [Suspect]
     Indication: NON-HODGKIN'S LYMPHOMA
     Dosage: ROUTE, DOSE AND FREQUENCY NOT REPORTED
     Route: 065
  4. ONCOVIN [Suspect]
     Indication: NON-HODGKIN'S LYMPHOMA
     Dosage: ROUTE, DOSE AND FREQUENCY NOT REPORTED
     Route: 065

REACTIONS (5)
  - INFECTION [None]
  - HYPERTHERMIA [None]
  - SEPTAL PANNICULITIS [None]
  - NODULE [None]
  - THROMBOCYTOPENIA [None]
